FAERS Safety Report 6178958-2 (Version None)
Quarter: 2009Q2

REPORT INFORMATION
  Report Type: 
  Country: None (occurrence: None)
  Receive Date: 20090505
  Receipt Date: 20090428
  Transmission Date: 20091009
  Serious: Yes (Congenital Anomaly)
  Sender: FDA-Public Use
  Company Number: CZ-BRISTOL-MYERS SQUIBB COMPANY-14547988

PATIENT
  Age: 8 Month

DRUGS (1)
  1. ABILIFY [Suspect]
     Route: 064
     Dates: start: 20051101

REACTIONS (1)
  - CEREBRAL PALSY [None]
